FAERS Safety Report 8201120-6 (Version None)
Quarter: 2012Q1

REPORT INFORMATION
  Report Type: 
  Country: None (occurrence: None)
  Receive Date: 20120312
  Receipt Date: 20120305
  Transmission Date: 20120608
  Serious: Yes (Death, Other)
  Sender: FDA-Public Use
  Company Number: US-JNJFOC-20120304452

PATIENT

DRUGS (5)
  1. DOXORUBICIN HCL [Suspect]
     Indication: MULTIPLE MYELOMA
     Dosage: AS 90 MIN INFUSION ON DAY 1 OF CYCLE 1 WITH OTHER DOSES GIVEN OVER 30-60 MIN
     Route: 042
  2. LENALIDOMIDE [Suspect]
     Indication: MULTIPLE MYELOMA
     Route: 065
  3. DEXAMETHASONE [Suspect]
     Indication: MULTIPLE MYELOMA
     Route: 042
  4. BORTEZOMIB [Suspect]
     Indication: MULTIPLE MYELOMA
     Route: 042
  5. ASPIRIN [Concomitant]
     Indication: ANTICOAGULANT THERAPY
     Route: 065

REACTIONS (23)
  - NEUTROPENIA [None]
  - CELLULITIS [None]
  - NAUSEA [None]
  - HYPOCALCAEMIA [None]
  - VOMITING [None]
  - UPPER RESPIRATORY TRACT INFECTION [None]
  - OEDEMA [None]
  - MULTIPLE MYELOMA [None]
  - HYPOKALAEMIA [None]
  - CONFUSIONAL STATE [None]
  - LEUKOPENIA [None]
  - NEUROPATHY PERIPHERAL [None]
  - ABDOMINAL PAIN [None]
  - DYSPNOEA [None]
  - THROMBOCYTOPENIA [None]
  - PELVIC PAIN [None]
  - DIARRHOEA [None]
  - COUGH [None]
  - FATIGUE [None]
  - BACK PAIN [None]
  - ANAEMIA [None]
  - PNEUMONIA [None]
  - PAIN [None]
